FAERS Safety Report 4964422-2 (Version None)
Quarter: 2006Q1

REPORT INFORMATION
  Report Type: 
  Country: None (occurrence: None)
  Receive Date: 20060331
  Receipt Date: 20060321
  Transmission Date: 20060701
  Serious: Yes (Other)
  Sender: FDA-Public Use
  Company Number: HQWYE467422MAR06

PATIENT
  Age: 61 Year
  Sex: Male
  Weight: 35.19 kg

DRUGS (4)
  1. RAPAMUNE [Suspect]
     Indication: PROPHYLAXIS AGAINST TRANSPLANT REJECTION
     Dosage: SEE IMAGE
     Route: 048
     Dates: start: 20060120, end: 20060101
  2. RAPAMUNE [Suspect]
     Indication: PROPHYLAXIS AGAINST TRANSPLANT REJECTION
     Dosage: SEE IMAGE
     Route: 048
     Dates: start: 20060113, end: 20060113
  3. RAPAMUNE [Suspect]
     Indication: PROPHYLAXIS AGAINST TRANSPLANT REJECTION
     Dosage: SEE IMAGE
     Route: 048
     Dates: start: 20060114, end: 20060119
  4. RAPAMUNE [Suspect]
     Indication: PROPHYLAXIS AGAINST TRANSPLANT REJECTION
     Dosage: SEE IMAGE
     Route: 048
     Dates: start: 20060101

REACTIONS (5)
  - ACCIDENTAL OVERDOSE [None]
  - IMMUNOSUPPRESSANT DRUG LEVEL INCREASED [None]
  - INAPPROPRIATE SCHEDULE OF DRUG ADMINISTRATION [None]
  - LIP PAIN [None]
  - RASH [None]
